FAERS Safety Report 10587562 (Version 4)
Quarter: 2015Q1

REPORT INFORMATION
  Report Type: Report from Study
  Country: KR (occurrence: KR)
  Receive Date: 20141117
  Receipt Date: 20150205
  Transmission Date: 20150720
  Serious: Yes (Death, Hospitalization)
  Sender: FDA-Public Use
  Company Number: KR-SA-2014SA155067

PATIENT
  Age: 83 Year
  Sex: Male
  Weight: 64 kg

DRUGS (2)
  1. LANTUS [Suspect]
     Active Substance: INSULIN GLARGINE
     Indication: DIABETES MELLITUS
     Dosage: DOSE:34 UNIT(S)
     Route: 058
     Dates: start: 20140806, end: 201410
  2. APIDRA [Suspect]
     Active Substance: INSULIN GLULISINE
     Indication: DIABETES MELLITUS
     Dosage: DOSE: 4-0-0 UNIT DOSE:4 UNIT(S)
     Route: 058
     Dates: start: 20140806, end: 201410

REACTIONS (5)
  - Condition aggravated [Fatal]
  - Peritoneal disorder [Fatal]
  - Cholangiocarcinoma [Fatal]
  - Pulmonary embolism [Fatal]
  - Metastases to lung [Fatal]

NARRATIVE: CASE EVENT DATE: 20141015
